FAERS Safety Report 17559954 (Version 1)
Quarter: 2020Q1

REPORT INFORMATION
  Report Type: Spontaneous
  Country: US (occurrence: US)
  Receive Date: 20200311
  Receipt Date: 20200311
  Transmission Date: 20200409
  Serious: No
  Sender: FDA-Public Use
  Company Number: None

PATIENT
  Sex: Male

DRUGS (1)
  1. NEORAL [Suspect]
     Active Substance: CYCLOSPORINE
     Indication: HEART TRANSPLANT
     Dosage: ?          OTHER DOSE:100MG/75MG;OTHER FREQUENCY:AM/PM;?
     Route: 048
     Dates: start: 202003

REACTIONS (1)
  - Muscle spasms [None]
